FAERS Safety Report 11914158 (Version 3)
Quarter: 2016Q2

REPORT INFORMATION
  Report Type: Report from Study
  Country: JP (occurrence: JP)
  Receive Date: 20160113
  Receipt Date: 20160505
  Transmission Date: 20160815
  Serious: Yes (Hospitalization)
  Sender: FDA-Public Use
  Company Number: JP-ASTRAZENECA-2016SE01939

PATIENT
  Age: 39 Year
  Sex: Female
  Weight: 96 kg

DRUGS (2)
  1. FORXIGA [Suspect]
     Active Substance: DAPAGLIFLOZIN
     Indication: TYPE 2 DIABETES MELLITUS
     Dosage: MORNINGS
     Route: 048
     Dates: start: 20150817
  2. TRAZENTA [Concomitant]
     Active Substance: LINAGLIPTIN
     Indication: TYPE 2 DIABETES MELLITUS
     Route: 048
     Dates: start: 20150323, end: 20150928

REACTIONS (1)
  - Ventricular tachycardia [Recovering/Resolving]

NARRATIVE: CASE EVENT DATE: 20151006
